FAERS Safety Report 18270181 (Version 1)
Quarter: 2020Q3

REPORT INFORMATION
  Report Type: Other
  Country: AU (occurrence: AU)
  Receive Date: 20200915
  Receipt Date: 20200915
  Transmission Date: 20201103
  Serious: Yes (Hospitalization)
  Sender: FDA-Public Use
  Company Number: AU-B.BRAUN MEDICAL INC.-2090762

PATIENT
  Age: 79 Year
  Sex: Male

DRUGS (5)
  1. AMLODIPINE [Concomitant]
     Active Substance: AMLODIPINE BESYLATE
  2. MEROPENEM FOR INJECTION USP AND SODIUM CHLORIDE INJECTION USP IN THE [Suspect]
     Active Substance: MEROPENEM\SODIUM CHLORIDE
  3. VANCOMYCIN HYDROCHLORIDE. [Concomitant]
     Active Substance: VANCOMYCIN HYDROCHLORIDE
  4. ATORVASTATIN [Concomitant]
     Active Substance: ATORVASTATIN
  5. DUTASTERIDE AND TAMSULOSIN HYDROCHLORIDE [Concomitant]
     Active Substance: DUTASTERIDE\TAMSULOSIN HYDROCHLORIDE

REACTIONS (1)
  - Vanishing bile duct syndrome [None]
